FAERS Safety Report 4616300-6 (Version None)
Quarter: 2005Q1

REPORT INFORMATION
  Report Type: 
  Country: None (occurrence: None)
  Receive Date: 20050321
  Receipt Date: 20050306
  Transmission Date: 20050727
  Serious: Yes (Hospitalization, Other)
  Sender: FDA-Public Use
  Company Number: 2005040910

PATIENT
  Sex: Female
  Weight: 72.5755 kg

DRUGS (8)
  1. ZOLOFT [Suspect]
     Indication: DEPRESSION
     Dosage: 50 MG (50 MG, 1 IN 1 D), ORAL
     Route: 048
  2. VFEND [Suspect]
     Indication: RESPIRATORY MONILIASIS
     Dosage: INTRAVENOUS
     Route: 042
     Dates: start: 20050301
  3. FAMOTIDINE [Suspect]
     Indication: ILL-DEFINED DISORDER
     Dosage: 20 MG (20 MG, 1 IN 1 D), INTRAVENOUS
     Route: 042
     Dates: end: 20050306
  4. MEPERIDINE HYDROCHLORIDE [Suspect]
     Indication: ILL-DEFINED DISORDER
     Dates: end: 20050306
  5. PIP/TAZO (PIPERACILLIN SODIUM, TAZOBACTAM SODIUM) [Suspect]
     Indication: ILL-DEFINED DISORDER
  6. THEOPHYLLINE [Concomitant]
  7. RAMIPRIL [Concomitant]
  8. ALL OTHER THERAPEUTIC PRODUCTS (ALL OTHER THERAPEUTIC PRODUCTS) [Concomitant]

REACTIONS (6)
  - BRONCHIAL INFECTION [None]
  - CONFUSIONAL STATE [None]
  - DRUG INTERACTION [None]
  - INCOHERENT [None]
  - LUNG ADENOCARCINOMA [None]
  - RESPIRATORY MONILIASIS [None]
